FAERS Safety Report 19159102 (Version 1)
Quarter: 2021Q2

REPORT INFORMATION
  Report Type: Spontaneous
  Country: RU (occurrence: RU)
  Receive Date: 20210420
  Receipt Date: 20210420
  Transmission Date: 20210717
  Serious: Yes (Other)
  Sender: FDA-Public Use
  Company Number: RU-ORGANON-O2103RUS002194

PATIENT
  Age: 40 Year
  Sex: Female
  Weight: 67 kg

DRUGS (1)
  1. NASONEX [Suspect]
     Active Substance: MOMETASONE FUROATE
     Indication: SINUSITIS
     Dosage: 2 DOSAGE FORM (ONE DOSE IN EACH NOSTRIL)
     Dates: start: 20210308, end: 20210310

REACTIONS (5)
  - Headache [Recovered/Resolved]
  - Bronchospasm [Recovered/Resolved]
  - Cough [Recovered/Resolved]
  - Facial pain [Recovered/Resolved]
  - Intellectual disability [Recovered/Resolved]

NARRATIVE: CASE EVENT DATE: 2021
